FAERS Safety Report 20571652 (Version 3)
Quarter: 2022Q4

REPORT INFORMATION
  Report Type: Spontaneous
  Country: JP (occurrence: JP)
  Receive Date: 20220309
  Receipt Date: 20221026
  Transmission Date: 20230113
  Serious: Yes (Other)
  Sender: FDA-Public Use
  Company Number: JP-BRISTOL-MYERS SQUIBB COMPANY-BMS-2022-015738

PATIENT
  Age: 67 Year
  Sex: Male
  Weight: 52 kg

DRUGS (11)
  1. YERVOY [Suspect]
     Active Substance: IPILIMUMAB
     Indication: Non-small cell lung cancer recurrent
     Route: 041
     Dates: start: 20210414, end: 20210708
  2. YERVOY [Suspect]
     Active Substance: IPILIMUMAB
     Dosage: 50 MG
     Route: 041
     Dates: start: 20210414, end: 202105
  3. YERVOY [Suspect]
     Active Substance: IPILIMUMAB
     Dosage: 50 MG
     Route: 041
     Dates: end: 20210708
  4. OPDIVO [Suspect]
     Active Substance: NIVOLUMAB
     Indication: Non-small cell lung cancer recurrent
     Route: 041
     Dates: start: 20210414, end: 20210708
  5. OPDIVO [Suspect]
     Active Substance: NIVOLUMAB
     Dosage: 150 MG
     Route: 042
     Dates: start: 20210414, end: 20210708
  6. CARBOPLATIN [Suspect]
     Active Substance: CARBOPLATIN
     Indication: Non-small cell lung cancer recurrent
     Dosage: 150 MG
     Route: 041
     Dates: start: 20210414, end: 20210708
  7. GRANISETRON [Suspect]
     Active Substance: GRANISETRON
     Indication: Non-small cell lung cancer recurrent
     Route: 041
     Dates: start: 20210414, end: 20210708
  8. GRANISETRON [Suspect]
     Active Substance: GRANISETRON
     Dosage: 3 MG
     Route: 041
     Dates: start: 20210414, end: 20210708
  9. ALIMTA [Suspect]
     Active Substance: PEMETREXED DISODIUM
     Indication: Non-small cell lung cancer recurrent
     Dosage: 500 MG
     Route: 041
     Dates: start: 20210414, end: 202105
  10. ALIMTA [Suspect]
     Active Substance: PEMETREXED DISODIUM
     Dosage: 500 MG
     Route: 041
     Dates: end: 20210708
  11. DEXAMETHASONE SODIUM PHOSPHATE [Suspect]
     Active Substance: DEXAMETHASONE SODIUM PHOSPHATE
     Indication: Non-small cell lung cancer recurrent
     Dosage: 6.6 MG
     Route: 041
     Dates: start: 20210414, end: 20210708

REACTIONS (12)
  - Malignant neoplasm progression [Unknown]
  - Polymyalgia rheumatica [Unknown]
  - Sjogren^s syndrome [Unknown]
  - Myalgia [Not Recovered/Not Resolved]
  - Arthritis [Unknown]
  - Pyrexia [Recovered/Resolved]
  - Nausea [Recovering/Resolving]
  - Papule [Not Recovered/Not Resolved]
  - Folliculitis [Recovering/Resolving]
  - Diarrhoea [Recovering/Resolving]
  - Dry mouth [Recovered/Resolved]
  - Xerophthalmia [Unknown]

NARRATIVE: CASE EVENT DATE: 20210416
